FAERS Safety Report 7683250-0 (Version None)
Quarter: 2011Q3

REPORT INFORMATION
  Report Type: 
  Country: None (occurrence: None)
  Receive Date: 20110815
  Receipt Date: 20110808
  Transmission Date: 20111222
  Serious: Yes (Other)
  Sender: FDA-Public Use
  Company Number: FR-CEPHALON-2009008816

PATIENT
  Age: 85 Year
  Sex: Female

DRUGS (1)
  1. MODAFINIL [Suspect]
     Indication: NARCOLEPSY
     Route: 048

REACTIONS (3)
  - INAPPROPRIATE ANTIDIURETIC HORMONE SECRETION [None]
  - HYPONATRAEMIA [None]
  - CONFUSIONAL STATE [None]
